FAERS Safety Report 7262551-4 (Version None)
Quarter: 2011Q1

REPORT INFORMATION
  Report Type: 
  Country: None (occurrence: None)
  Receive Date: 20110130
  Receipt Date: 20101209
  Transmission Date: 20110831
  Serious: No
  Sender: FDA-Public Use
  Company Number: US-ABBOTT-10P-163-0690736-00

PATIENT
  Sex: Female
  Weight: 51.302 kg

DRUGS (6)
  1. URSODIOL [Concomitant]
     Indication: BILIARY CIRRHOSIS PRIMARY
  2. RANITIDINE [Concomitant]
     Indication: PRODUCT USED FOR UNKNOWN INDICATION
  3. HUMIRA [Suspect]
     Indication: RHEUMATOID ARTHRITIS
     Dates: start: 20090101, end: 20100801
  4. SYNTHROID [Concomitant]
     Indication: PRODUCT USED FOR UNKNOWN INDICATION
  5. FOLIC ACID [Concomitant]
     Indication: PRODUCT USED FOR UNKNOWN INDICATION
  6. HUMIRA [Suspect]
     Dates: start: 20100801, end: 20101101

REACTIONS (5)
  - BACK PAIN [None]
  - ARTHRITIS [None]
  - MUSCLE SPASMS [None]
  - BRONCHITIS [None]
  - FALL [None]
